FAERS Safety Report 5758910-9 (Version None)
Quarter: 2008Q2

REPORT INFORMATION
  Report Type: 
  Country: None (occurrence: None)
  Receive Date: 20080604
  Receipt Date: 20080529
  Transmission Date: 20081010
  Serious: Yes (Other)
  Sender: FDA-Public Use
  Company Number: PHBS2007BR14458

PATIENT
  Age: 56 Year
  Sex: Female
  Weight: 55 kg

DRUGS (3)
  1. ESTRADERM [Suspect]
     Indication: HORMONE REPLACEMENT THERAPY
     Dosage: 100 MCG
     Route: 062
  2. ESTRADERM [Suspect]
     Dosage: 50 MCG
     Route: 062
  3. ZETORETIC [Concomitant]
     Indication: HYPERTENSION
     Dosage: 20/12.5 MG, QD
     Route: 048

REACTIONS (3)
  - ANAL HAEMORRHAGE [None]
  - NERVOUSNESS [None]
  - VAGINAL HAEMORRHAGE [None]
